FAERS Safety Report 9124487 (Version 2)
Quarter: 2013Q1

REPORT INFORMATION
  Report Type: Report from Study
  Country: CA (occurrence: CA)
  Receive Date: 20130116
  Receipt Date: 20130308
  Transmission Date: 20140127
  Serious: Yes (Hospitalization, Other)
  Sender: FDA-Public Use
  Company Number: CA-JNJFOC-20121106639

PATIENT
  Age: 34 None
  Sex: Female
  Weight: 77.7 kg

DRUGS (5)
  1. REMICADE [Suspect]
     Indication: CROHN^S DISEASE
     Route: 042
     Dates: start: 20111122
  2. METHOTREXATE [Concomitant]
     Route: 048
  3. BENADRYL [Concomitant]
     Indication: PREMEDICATION
     Route: 048
  4. TYLENOL [Concomitant]
     Indication: PREMEDICATION
     Route: 048
  5. SOLUCORTEF [Concomitant]
     Indication: PREMEDICATION
     Route: 042

REACTIONS (3)
  - Abscess [Recovered/Resolved]
  - Smear cervix abnormal [Unknown]
  - Anal abscess [Recovered/Resolved]
